FAERS Safety Report 23557075 (Version 1)
Quarter: 2024Q1

REPORT INFORMATION
  Report Type: Spontaneous
  Country: IT (occurrence: IT)
  Receive Date: 20240223
  Receipt Date: 20240223
  Transmission Date: 20240410
  Serious: Yes (Other)
  Sender: FDA-Public Use
  Company Number: None

PATIENT
  Age: 50 Year
  Sex: Female
  Weight: 60 kg

DRUGS (2)
  1. ATENOLOL [Suspect]
     Active Substance: ATENOLOL
     Indication: Hypertension
     Dosage: 100 MG/DAY FOR HYPERTENSION
     Route: 048
     Dates: start: 2022
  2. TAMSULOSIN [Suspect]
     Active Substance: TAMSULOSIN
     Indication: Nephrolithiasis
     Dosage: O.4 MG 1 TIME PER DAY, GENERICS
     Route: 048
     Dates: start: 20231030, end: 20231104

REACTIONS (1)
  - Faecaloma [Recovered/Resolved]

NARRATIVE: CASE EVENT DATE: 20231031
